FAERS Safety Report 13813606 (Version 1)
Quarter: 2017Q3

REPORT INFORMATION
  Report Type: Spontaneous
  Country: AU (occurrence: AU)
  Receive Date: 20170731
  Receipt Date: 20170731
  Transmission Date: 20171127
  Serious: Yes (Hospitalization, Other)
  Sender: FDA-Public Use
  Company Number: AU-APOTEX-2017AP016010

PATIENT
  Sex: Female

DRUGS (3)
  1. APO-VENLAFXAINE XR [Suspect]
     Active Substance: VENLAFAXINE HYDROCHLORIDE
     Indication: MAJOR DEPRESSION
     Dosage: 262.5 MG, UNK
     Route: 065
  2. LITHIUM. [Suspect]
     Active Substance: LITHIUM
     Indication: MAJOR DEPRESSION
     Dosage: 250 MG, UNK
     Route: 065
  3. APO-MIRTAZAPINE [Suspect]
     Active Substance: MIRTAZAPINE
     Indication: MAJOR DEPRESSION
     Dosage: 45 MG, UNK
     Route: 065

REACTIONS (8)
  - Affect lability [Recovered/Resolved]
  - Tachyphrenia [Recovered/Resolved]
  - Impulsive behaviour [Recovered/Resolved]
  - Drug withdrawal syndrome [Unknown]
  - Affective disorder [Unknown]
  - Drug ineffective [Unknown]
  - Energy increased [Recovered/Resolved]
  - Dysphoria [Recovered/Resolved]
